FAERS Safety Report 5043135-5 (Version None)
Quarter: 2006Q3

REPORT INFORMATION
  Report Type: 
  Country: None (occurrence: None)
  Receive Date: 20060705
  Receipt Date: 20060113
  Transmission Date: 20061208
  Serious: Yes (Hospitalization)
  Sender: FDA-Public Use
  Company Number: 2006CG00114

PATIENT
  Age: 887 Month
  Sex: Male
  Weight: 80 kg

DRUGS (14)
  1. CASODEX [Suspect]
     Indication: PROSTATE CANCER
     Route: 048
     Dates: start: 20051001, end: 20051223
  2. TAHOR [Suspect]
     Route: 048
     Dates: start: 20051001, end: 20051213
  3. ENANTONE [Concomitant]
     Indication: PROSTATE CANCER
     Route: 058
     Dates: start: 20051001
  4. SINTROM [Concomitant]
     Route: 048
     Dates: end: 20060401
  5. SINTROM [Concomitant]
     Route: 048
     Dates: end: 20060401
  6. LASILIX [Concomitant]
     Route: 048
     Dates: end: 20060301
  7. LASILIX [Concomitant]
     Route: 048
     Dates: start: 20060301
  8. FLECAINIDE ACETATE [Concomitant]
     Route: 048
  9. ALPRAZOLAM [Concomitant]
  10. BECOTIDE [Concomitant]
     Route: 055
  11. STILNOX [Concomitant]
  12. PARACETAMOL [Concomitant]
  13. MUCOMYST [Concomitant]
  14. DUPHALAC [Concomitant]

REACTIONS (9)
  - BACK PAIN [None]
  - CHOLESTASIS [None]
  - CHRONIC OBSTRUCTIVE PULMONARY DISEASE [None]
  - CYTOLYTIC HEPATITIS [None]
  - EOSINOPHILIA [None]
  - ERYTHEMA [None]
  - GAMMA-GLUTAMYLTRANSFERASE INCREASED [None]
  - PRURITUS [None]
  - RENAL FAILURE [None]
